FAERS Safety Report 25903332 (Version 3)
Quarter: 2025Q4

REPORT INFORMATION
  Report Type: Spontaneous
  Country: JP (occurrence: JP)
  Receive Date: 20251009
  Receipt Date: 20251201
  Transmission Date: 20260117
  Serious: Yes (Death, Other)
  Sender: GLAXOSMITHKLINE
  Company Number: JP-GSKJP-JP2025JPN128911AA

PATIENT
  Sex: Male

DRUGS (1)
  1. DAPRODUSTAT [Suspect]
     Active Substance: DAPRODUSTAT
     Indication: Nephrogenic anaemia
     Dosage: UNK

REACTIONS (4)
  - Asbestosis [Fatal]
  - Mesothelioma malignant [Fatal]
  - General physical health deterioration [Fatal]
  - Venous thrombosis [Unknown]

NARRATIVE: CASE EVENT DATE: 20250101
